FAERS Safety Report 5807662-2 (Version None)
Quarter: 2008Q3

REPORT INFORMATION
  Report Type: 
  Country: None (occurrence: None)
  Receive Date: 20080708
  Receipt Date: 20080623
  Transmission Date: 20090109
  Serious: Yes (Hospitalization)
  Sender: FDA-Public Use
  Company Number: CFNTY-255

PATIENT
  Age: 30 Year
  Sex: Female

DRUGS (1)
  1. SPECTRACEF [Suspect]
     Indication: OTITIS MEDIA ACUTE
     Dosage: 800 MG ORALLY
     Route: 048

REACTIONS (2)
  - HEMIPARESIS [None]
  - MENINGITIS PNEUMOCOCCAL [None]
